FAERS Safety Report 8564319-5 (Version None)
Quarter: 2012Q3

REPORT INFORMATION
  Report Type: 
  Country: None (occurrence: None)
  Receive Date: 20120803
  Receipt Date: 20120725
  Transmission Date: 20120928
  Serious: Yes (Other)
  Sender: FDA-Public Use
  Company Number: JP-009507513-2012SP013381

PATIENT

DRUGS (44)
  1. REBETOL [Suspect]
     Route: 048
     Dates: start: 20120611, end: 20120618
  2. EPADEL [Concomitant]
     Dosage: UPDATE (07MAY2012): FORMULATION: POR
     Route: 048
  3. DOGMATYL [Concomitant]
     Indication: GASTRITIS
     Dosage: UPDATE (07MAY2012): FORMULATION: POR
     Route: 048
  4. PEG-INTRON [Suspect]
     Dosage: 1.2MCG/KG/WEEK
     Route: 058
     Dates: end: 20120312
  5. EPADEL S [Concomitant]
     Indication: HYPERLIPIDAEMIA
     Route: 048
  6. PEGINTERFERON ALFA-2B [Suspect]
     Dosage: 1.0 ?G/KG, QW
     Route: 058
     Dates: start: 20120213
  7. REBETOL [Suspect]
     Route: 048
     Dates: start: 20120521, end: 20120527
  8. SLOW-K [Concomitant]
     Route: 048
  9. CLARITIN REDITABS [Concomitant]
     Indication: PROPHYLAXIS
     Dosage: UPDATE (07MAY2012)
     Route: 048
  10. PEG-INTRON [Suspect]
     Dosage: 1.2MCG/KG/WEEK
     Route: 058
     Dates: start: 20120416, end: 20120416
  11. PEG-INTRON [Suspect]
     Dosage: 1.5MCG/KG/WEEK
     Route: 058
     Dates: start: 20120424, end: 20120618
  12. TELAVIC [Suspect]
     Route: 048
     Dates: start: 20120130, end: 20120325
  13. PEGINTERFERON ALFA-2B [Suspect]
     Indication: HEPATITIS C
     Dosage: 1.5 ?G/KG, QW
     Route: 058
     Dates: start: 20120107, end: 20120206
  14. SLOW-K [Concomitant]
     Indication: HYPOKALAEMIA
     Dosage: UPDATE (07MAY2012): FORMULATION: POR, FREQUENCY
     Route: 048
  15. SODIUM FERROUS CITRATE [Concomitant]
     Indication: IRON DEFICIENCY ANAEMIA
     Dosage: UPDATE (07MAY2012): FORMULATION: POR, FREQUENCY
     Route: 048
  16. PREDONINE [Concomitant]
     Indication: RASH
     Dosage: UPDATE (07MAY2012)
     Route: 065
     Dates: start: 20120110, end: 20120116
  17. PEG-INTRON [Suspect]
     Dosage: 1.0MCG/KG/WEEK
     Route: 058
     Dates: start: 20120319, end: 20120319
  18. REBETOL [Suspect]
     Dosage: 200 MG, QD
     Route: 048
     Dates: start: 20120130, end: 20120212
  19. DOGMATYL [Concomitant]
     Route: 048
  20. TELAVIC [Suspect]
     Indication: HEPATITIS C
     Route: 048
     Dates: start: 20120107, end: 20120129
  21. LIVALO [Concomitant]
     Indication: HYPERLIPIDAEMIA
     Route: 048
     Dates: end: 20120113
  22. PEGINTERFERON ALFA-2B [Suspect]
     Dosage: 0.8 ?G/KG, QW
     Route: 058
     Dates: start: 20120326
  23. INVESTIGATIONAL DRUG (UNSPECIFIED) [Suspect]
     Indication: HEPATITIS C
     Dosage: 2250 MG, QD
     Route: 048
     Dates: start: 20120107, end: 20120129
  24. PEG-INTRON [Suspect]
     Indication: HEPATITIS C
     Dosage: 1.5MCG/KG/WEEK
     Route: 058
     Dates: start: 20120107, end: 20120206
  25. FEROTYM [Concomitant]
     Indication: IRON DEFICIENCY ANAEMIA
     Route: 048
  26. PEGINTERFERON ALFA-2B [Suspect]
     Dosage: 1.2 ?G/KG, QW
     Route: 058
     Dates: end: 20120312
  27. REBETOL [Suspect]
     Indication: HEPATITIS C
     Dosage: 600 MG, QD
     Route: 048
     Dates: start: 20120107, end: 20120129
  28. REBETOL [Suspect]
     Dosage: 600 MG, QD
     Route: 048
     Dates: end: 20120311
  29. REBETOL [Suspect]
     Dosage: 200 MG, QD
     Route: 048
     Dates: start: 20120312, end: 20120318
  30. REBETOL [Suspect]
     Route: 048
     Dates: start: 20120528, end: 20120603
  31. PITAVASTATIN CALCIUM [Concomitant]
     Indication: HYPERLIPIDAEMIA
     Dosage: UPDATE (07MAY2012): FORMULATION: POR, FREQUENCY, STOP DATE
     Route: 048
     Dates: end: 20120113
  32. EPADEL [Concomitant]
     Indication: HYPERLIPIDAEMIA
     Dosage: UPDATE (07MAY2012): FORMULATION: POR, FREQUENCY
     Route: 048
  33. EPADEL [Concomitant]
     Route: 048
  34. PEG-INTRON [Suspect]
     Dosage: 1.0MCG/KG/WEEK
     Route: 058
     Dates: start: 20120213
  35. REBETOL [Suspect]
     Dosage: 400 MG, QD
     Route: 048
     Dates: start: 20120213
  36. REBETOL [Suspect]
     Route: 048
     Dates: start: 20120430, end: 20120520
  37. REBETOL [Suspect]
     Route: 048
     Dates: start: 20120604, end: 20120610
  38. INVESTIGATIONAL DRUG (UNSPECIFIED) [Suspect]
     Dosage: 1500 MG, QD
     Route: 048
     Dates: start: 20120130, end: 20120325
  39. CLARITIN [Concomitant]
     Indication: PROPHYLAXIS
     Dosage: UPDATE (07MAY2012): FORMULATION: POR, FREQUENCY
     Route: 048
  40. CLARITIN [Concomitant]
     Route: 048
  41. PREDONINE [Concomitant]
     Dosage: UPDATE (07MAY2012)
     Route: 065
     Dates: start: 20120117
  42. PEG-INTRON [Suspect]
     Dosage: 0.8MCG/KG/WEEK
     Route: 058
     Dates: start: 20120326, end: 20120409
  43. PEGINTERFERON ALFA-2B [Suspect]
     Dosage: 1.0 ?G/KG, QW
     Route: 058
     Dates: start: 20120319, end: 20120319
  44. CLARITIN REDITABS [Concomitant]
     Route: 048

REACTIONS (2)
  - RENAL DISORDER [None]
  - ANAEMIA [None]
